FAERS Safety Report 4415428-3 (Version None)
Quarter: 2004Q2

REPORT INFORMATION
  Report Type: 
  Country: None (occurrence: None)
  Receive Date: 20040621
  Receipt Date: 20031211
  Transmission Date: 20050107
  Serious: Yes (Other)
  Sender: FDA-Public Use
  Company Number: USA-2003-0012068

PATIENT
  Age: 30 Year
  Sex: Male

DRUGS (3)
  1. OXYCONTIN [Suspect]
     Indication: PAIN
     Dosage: 30 MG, Q12H, ORAL
     Route: 048
     Dates: start: 20031021
  2. XANAX [Concomitant]
  3. PHENYTEK (UNABLE TO  ENCODE) [Concomitant]

REACTIONS (1)
  - DRUG ABUSER [None]
